FAERS Safety Report 22089591 (Version 1)
Quarter: 2023Q1

REPORT INFORMATION
  Report Type: Spontaneous
  Country: US (occurrence: None)
  Receive Date: 20230311
  Receipt Date: 20230311
  Transmission Date: 20230418
  Serious: Yes (Other)
  Sender: FDA-Public Use
  Company Number: None

PATIENT
  Age: 66 Year
  Sex: Female
  Weight: 69.3 kg

DRUGS (1)
  1. CIPROFLOXACIN [Suspect]
     Active Substance: CIPROFLOXACIN
     Indication: Urinary tract infection
     Dosage: OTHER QUANTITY : 1 TABLET(S);?FREQUENCY : EVERY 12 HOURS;?
     Route: 048
     Dates: start: 20230227, end: 20230228

REACTIONS (7)
  - Malaise [None]
  - Discoloured vomit [None]
  - Diarrhoea [None]
  - Dizziness [None]
  - Presyncope [None]
  - Back pain [None]
  - Nausea [None]

NARRATIVE: CASE EVENT DATE: 20230227
